FAERS Safety Report 12667628 (Version 2)
Quarter: 2016Q3

REPORT INFORMATION
  Report Type: Spontaneous
  Country: JP (occurrence: JP)
  Receive Date: 20160819
  Receipt Date: 20160831
  Transmission Date: 20161109
  Serious: Yes (Other)
  Sender: FDA-Public Use
  Company Number: JP-PFIZER INC-2016280844

PATIENT
  Sex: Male
  Weight: 90 kg

DRUGS (1)
  1. BENEFIX [Suspect]
     Active Substance: COAGULATION FACTOR IX RECOMBINANT HUMAN\ISOPROPYL ALCOHOL
     Indication: FACTOR IX DEFICIENCY
     Dosage: 4000 IU, DAILY
     Route: 042

REACTIONS (3)
  - Haemorrhage [Recovering/Resolving]
  - Drug ineffective [Recovered/Resolved]
  - Haemarthrosis [Recovered/Resolved]
